FAERS Safety Report 4596614-9 (Version None)
Quarter: 2005Q1

REPORT INFORMATION
  Report Type: 
  Country: None (occurrence: None)
  Receive Date: 20050228
  Receipt Date: 20050215
  Transmission Date: 20050727
  Serious: Yes (Other)
  Sender: FDA-Public Use
  Company Number: 2005031556

PATIENT
  Age: 74 Year
  Sex: Female
  Weight: 86.637 kg

DRUGS (14)
  1. DETROL LA [Suspect]
     Indication: AUTOMATIC BLADDER
     Dosage: 4 MG (4 MG, QD), ORAL
     Route: 048
     Dates: start: 20040101
  2. DETROL LA [Suspect]
     Indication: HYPERTONIC BLADDER
     Dosage: 4 MG (4 MG, QD), ORAL
     Route: 048
     Dates: start: 20040101
  3. TYLENOL PM (DIPHENHYDRAMINE, PARACETAMOL) [Suspect]
     Indication: SLEEP DISORDER
  4. DIPHENHYDRAMINE HCL [Suspect]
     Indication: SLEEP DISORDER
     Dates: start: 20050201
  5. ACETAMINOPHEN [Suspect]
     Indication: PAIN
     Dosage: 500 MG
  6. THERAGRAN-M (MINERALS NOS, VITAMINS NOS) [Concomitant]
  7. LEVOTHYROXINE SODIUM [Concomitant]
  8. GLIPIZIDE [Concomitant]
  9. ATENOLOL [Concomitant]
  10. LISINOPRIL [Concomitant]
  11. ISOSORBIDE (ISOSORBIDE) [Concomitant]
  12. PANTOPRAZOLE (PANTOPRAZOLE) [Concomitant]
  13. ASPIRIN [Concomitant]
  14. CAFALEXIN MONOHYDRATE (CEFALEXIN MONOHYDRATE) [Concomitant]

REACTIONS (6)
  - CATARACT [None]
  - DRUG INTERACTION [None]
  - GAIT DISTURBANCE [None]
  - MUSCULAR WEAKNESS [None]
  - PAIN [None]
  - VISION BLURRED [None]
